FAERS Safety Report 10369572 (Version 1)
Quarter: 2014Q3

REPORT INFORMATION
  Report Type: Spontaneous
  Country: US (occurrence: US)
  Receive Date: 20140807
  Receipt Date: 20140807
  Transmission Date: 20150326
  Serious: No
  Sender: FDA-Public Use
  Company Number: US-AMGEN-USASP2014021192

PATIENT
  Age: 49 Year
  Sex: Female

DRUGS (5)
  1. NEUPOGEN [Suspect]
     Active Substance: FILGRASTIM
     Indication: PRODUCT USED FOR UNKNOWN INDICATION
     Dosage: 300 MUG, UNK
     Route: 058
  2. ZOFRAN                             /00955301/ [Concomitant]
     Active Substance: ONDANSETRON HYDROCHLORIDE
     Dosage: 8 MG, UNK
     Route: 042
  3. HERCEPTIN [Suspect]
     Active Substance: TRASTUZUMAB
     Indication: BREAST CANCER
     Dosage: 105 MG, UNK
     Route: 042
  4. HALAVEN [Concomitant]
     Active Substance: ERIBULIN MESYLATE
     Dosage: 2.2 MG, UNK
     Route: 042
  5. HEPARIN [Concomitant]
     Active Substance: HEPARIN SODIUM
     Dosage: 5 ML, UNK

REACTIONS (4)
  - Fatigue [Unknown]
  - Dry skin [Unknown]
  - Skin warm [Unknown]
  - Dyspnoea [Unknown]
